FAERS Safety Report 5416470-6 (Version None)
Quarter: 2007Q3

REPORT INFORMATION
  Report Type: 
  Country: None (occurrence: None)
  Receive Date: 20070814
  Receipt Date: 20070801
  Transmission Date: 20080115
  Serious: Yes (Hospitalization)
  Sender: FDA-Public Use
  Company Number: GXKR2007AU06575

PATIENT
  Age: 14 Year
  Sex: Female
  Weight: 41 kg

DRUGS (5)
  1. FLUVOXAMINE MALEATE [Suspect]
     Indication: DEPRESSION
     Dosage: 150 MG, QD
  2. PROMETHAZINE HCL [Suspect]
     Indication: INCORRECT DOSE ADMINISTERED
     Dosage: 1150 MG, ONCE/SINGLE, ORAL
     Route: 048
  3. CYPROHEPTADINE (NGX)(CYPROHEPTADINE) UNKNOWN [Suspect]
     Indication: INCORRECT DOSE ADMINISTERED
     Dosage: 200 MG, ONCE/SINGLE, ORAL
     Route: 048
  4. BENZTROPINE MESYLATE [Suspect]
     Indication: EXTRAPYRAMIDAL DISORDER
     Dosage: 0.8 MG, INTRAVENOUS
     Route: 042
  5. OLANZAPINE [Suspect]
     Indication: AGITATION
     Dosage: 5 MG

REACTIONS (5)
  - ANTICHOLINERGIC SYNDROME [None]
  - DEHYDRATION [None]
  - DELIRIUM [None]
  - DRUG INTERACTION [None]
  - MULTIPLE DRUG OVERDOSE INTENTIONAL [None]
